FAERS Safety Report 7419950-7 (Version None)
Quarter: 2011Q2

REPORT INFORMATION
  Report Type: 
  Country: None (occurrence: None)
  Receive Date: 20110418
  Receipt Date: 20110411
  Transmission Date: 20111010
  Serious: Yes (Death)
  Sender: FDA-Public Use
  Company Number: FR-BIOGENIDEC-2011BI013465

PATIENT
  Age: 55 Year
  Sex: Female

DRUGS (5)
  1. LAMICTAL [Concomitant]
     Indication: PAIN
     Route: 048
     Dates: start: 20110101, end: 20110329
  2. IMOVANE [Concomitant]
  3. TYSABRI [Suspect]
     Indication: MULTIPLE SCLEROSIS
     Route: 042
     Dates: start: 20100101, end: 20110324
  4. DI-ANTALVIC [Concomitant]
  5. KARDEGIC [Concomitant]

REACTIONS (1)
  - SUDDEN DEATH [None]
